FAERS Safety Report 9156251 (Version 1)
Quarter: 2013Q1

REPORT INFORMATION
  Report Type: Spontaneous
  Country: US (occurrence: US)
  Receive Date: 20130123
  Receipt Date: 20130123
  Transmission Date: 20140127
  Serious: No
  Sender: FDA-Public Use
  Company Number: US-BRACCO-007434

PATIENT
  Sex: Female
  Weight: 59 kg

DRUGS (2)
  1. MULTIHANCE [Suspect]
     Indication: NUCLEAR MAGNETIC RESONANCE IMAGING BREAST
     Route: 042
     Dates: start: 20120117, end: 20120117
  2. ALL OTHER NON-THERAPEUTIC PRODUCTS [Concomitant]

REACTIONS (2)
  - Contrast media reaction [Recovered/Resolved]
  - Arthralgia [Recovered/Resolved]
